FAERS Safety Report 13265594 (Version 3)
Quarter: 2018Q2

REPORT INFORMATION
  Report Type: Report from Study
  Country: US (occurrence: US)
  Receive Date: 20170223
  Receipt Date: 20180517
  Transmission Date: 20180711
  Serious: Yes (Hospitalization)
  Sender: FDA-Public Use
  Company Number: US-THERATECHNOLOGIES, INC.-TH-2017-00185

PATIENT

DRUGS (13)
  1. VITAMIN E [Concomitant]
     Active Substance: .ALPHA.-TOCOPHEROL
     Dosage: 400 IU, UNK
     Dates: start: 20160621
  2. ADVAIR DISKU AER [Concomitant]
     Dosage: 100/50
     Dates: start: 20160621
  3. CRESTOR [Concomitant]
     Active Substance: ROSUVASTATIN CALCIUM
     Dosage: 5 MG MILLIGRAM(S), UNK
     Dates: start: 20170103
  4. RANITIDINE. [Concomitant]
     Active Substance: RANITIDINE
     Dosage: 300 MG MILLIGRAM(S), UNK
     Dates: start: 20160927
  5. CORTISONE CRE 1% [Concomitant]
     Dosage: UNK
     Dates: start: 20160621
  6. LORAZEPAM. [Concomitant]
     Active Substance: LORAZEPAM
     Dosage: 0.5 MG MILLIGRAM(S), UNK
     Dates: start: 20171214
  7. EGRIFTA [Suspect]
     Active Substance: TESAMORELIN
     Indication: LIPODYSTROPHY ACQUIRED
     Dosage: 2 MG MILLIGRAM(S), DAILY DOSE
     Route: 058
     Dates: start: 20160622
  8. CARVEDILOL. [Concomitant]
     Active Substance: CARVEDILOL
     Dosage: 3.125 MG MILLIGRAM(S), UNK
     Dates: start: 20160621
  9. CLONIDINE. [Concomitant]
     Active Substance: CLONIDINE
     Dosage: 0.2 MG MILLIGRAM(S), UNK
     Dates: start: 20160621
  10. HYDRALAZINE [Concomitant]
     Active Substance: HYDRALAZINE HYDROCHLORIDE
     Dosage: 50 MG MILLIGRAM(S), UNK
     Dates: start: 20170416
  11. LAMIVUDINE. [Concomitant]
     Active Substance: LAMIVUDINE
     Dosage: 100 MG MILLIGRAM(S), UNK
     Dates: start: 20170416
  12. ABACAVIR. [Concomitant]
     Active Substance: ABACAVIR
     Dosage: 300 MG MILLIGRAM(S), UNK
     Dates: start: 20170416
  13. TIVICAY [Concomitant]
     Active Substance: DOLUTEGRAVIR SODIUM
     Dosage: 50 MG MILLIGRAM(S), UNK
     Dates: start: 20170416

REACTIONS (4)
  - Pain [Unknown]
  - Drug ineffective [Not Recovered/Not Resolved]
  - Pain [Recovered/Resolved]
  - Waist circumference [Unknown]

NARRATIVE: CASE EVENT DATE: 201701
